FAERS Safety Report 17304635 (Version 1)
Quarter: 2020Q1

REPORT INFORMATION
  Report Type: Spontaneous
  Country: US (occurrence: US)
  Receive Date: 20200106
  Receipt Date: 20200106
  Transmission Date: 20200409
  Serious: Yes (Other)
  Sender: FDA-Public Use
  Company Number: None

PATIENT
  Age: 54 Year
  Sex: Female

DRUGS (1)
  1. MAYZENT [Suspect]
     Active Substance: SIPONIMOD
     Indication: MULTIPLE SCLEROSIS
     Route: 048
     Dates: start: 20191111, end: 20191224

REACTIONS (5)
  - Paranoia [None]
  - Crying [None]
  - Anxiety [None]
  - Depression [None]
  - Hallucination, auditory [None]

NARRATIVE: CASE EVENT DATE: 20191211
